FAERS Safety Report 8209444-3 (Version None)
Quarter: 2012Q1

REPORT INFORMATION
  Report Type: 
  Country: None (occurrence: None)
  Receive Date: 20120227
  Receipt Date: 20120119
  Transmission Date: 20120608
  Serious: No
  Sender: FDA-Public Use
  Company Number: 342136

PATIENT
  Age: 40 Year
  Sex: Male

DRUGS (1)
  1. VICTOZA [Suspect]
     Indication: TYPE 2 DIABETES MELLITUS
     Dosage: 1.2 MG, QD, SUBCUTANEOUS
     Route: 058
     Dates: start: 20111206

REACTIONS (8)
  - ERUCTATION [None]
  - DYSPEPSIA [None]
  - NAUSEA [None]
  - BREATH ODOUR [None]
  - BURNING SENSATION [None]
  - INJECTION SITE HAEMATOMA [None]
  - WEIGHT DECREASED [None]
  - DIARRHOEA [None]
